FAERS Safety Report 7675122-2 (Version None)
Quarter: 2011Q3

REPORT INFORMATION
  Report Type: 
  Country: None (occurrence: None)
  Receive Date: 20110810
  Receipt Date: 20110804
  Transmission Date: 20111222
  Serious: Yes (Other)
  Sender: FDA-Public Use
  Company Number: GB-MERCK-1108GBR00038

PATIENT
  Age: 57 Year
  Sex: Male
  Weight: 74 kg

DRUGS (6)
  1. AZITHROMYCIN [Concomitant]
     Route: 065
  2. MOMETASONE FUROATE [Concomitant]
     Route: 065
  3. FLUTICASONE PROPIONATE AND SALMETEROL XINAFOATE [Concomitant]
     Route: 065
  4. SINGULAIR [Suspect]
     Indication: ASTHMA
     Route: 048
     Dates: start: 20110301, end: 20110501
  5. ALBUTEROL [Concomitant]
     Route: 065
  6. TIOTROPIUM BROMIDE [Concomitant]
     Route: 065

REACTIONS (7)
  - ALLERGIC GRANULOMATOUS ANGIITIS [None]
  - PAIN [None]
  - NEUROPATHY PERIPHERAL [None]
  - EOSINOPHILIA [None]
  - VASCULITIC RASH [None]
  - CONDITION AGGRAVATED [None]
  - URINARY CASTS [None]
